FAERS Safety Report 6436711-6 (Version None)
Quarter: 2009Q4

REPORT INFORMATION
  Report Type: 
  Country: None (occurrence: None)
  Receive Date: 20091111
  Receipt Date: 20091030
  Transmission Date: 20100525
  Serious: Yes (Hospitalization)
  Sender: FDA-Public Use
  Company Number: US-PFIZER INC-2008091921

PATIENT
  Sex: Male

DRUGS (19)
  1. LYRICA [Suspect]
     Indication: NEUROPATHY PERIPHERAL
     Dosage: UNK
  2. LYRICA [Suspect]
     Dosage: 50 MG, ALTERNATE DAY
     Dates: start: 20081001
  3. PRAVACHOL [Concomitant]
     Dosage: 25 MG, 1X/DAY
  4. PROTONIX [Concomitant]
     Dosage: 40 MG, 1X/DAY
  5. AVODART [Concomitant]
     Dosage: 25 MG, 1X/DAY
  6. MUCINEX [Concomitant]
  7. BENICAR [Concomitant]
     Dosage: 40 MG, 1X/DAY
  8. SYNTHROID [Concomitant]
     Dosage: 50 MG, UNK
  9. RESTORIL [Concomitant]
  10. TAMSULOSIN HYDROCHLORIDE [Concomitant]
     Dosage: 0.4 MG, 1X/DAY
  11. PLAVIX [Concomitant]
     Dosage: 75 MG, 1X/DAY
  12. TOPROL-XL [Concomitant]
     Dosage: 50 MG, 1X/DAY
  13. PRAVASTATIN [Concomitant]
     Dosage: 25 MG, 1X/DAY
  14. OLMESARTAN [Concomitant]
     Dosage: 40 MG, 1X/DAY
  15. METOPROLOL SUCCINATE [Concomitant]
     Dosage: 50 MG, 1X/DAY
  16. CLOPIDOGREL [Concomitant]
     Dosage: 75 MG, 1X/DAY
  17. DUTASTERIDE [Concomitant]
     Dosage: 0.5 MG, 1X/DAY
  18. LEVOTHYROXINE [Concomitant]
     Dosage: 50 MG, 1X/DAY
  19. PANTOPRAZOLE [Concomitant]
     Dosage: 40 MG, 1X/DAY

REACTIONS (12)
  - ARTHRALGIA [None]
  - ASTHENIA [None]
  - ASTHENOPIA [None]
  - BLOOD SODIUM DECREASED [None]
  - DIZZINESS [None]
  - DIZZINESS EXERTIONAL [None]
  - DRUG INEFFECTIVE [None]
  - HEADACHE [None]
  - JOINT SWELLING [None]
  - PAIN IN EXTREMITY [None]
  - SLEEP DISORDER [None]
  - WEIGHT INCREASED [None]
